FAERS Safety Report 24354498 (Version 2)
Quarter: 2024Q4

REPORT INFORMATION
  Report Type: Report from Study
  Country: DE (occurrence: DE)
  Receive Date: 20240923
  Receipt Date: 20241227
  Transmission Date: 20250115
  Serious: Yes (Other)
  Sender: KYOWA
  Company Number: DE-KYOWAKIRIN-2024KK021732

PATIENT

DRUGS (3)
  1. BUROSUMAB [Suspect]
     Active Substance: BUROSUMAB
     Indication: Hereditary hypophosphataemic rickets
     Dosage: 40 MG
     Route: 058
     Dates: start: 20240903
  2. BUROSUMAB [Suspect]
     Active Substance: BUROSUMAB
     Dosage: 6 MG
     Route: 058
     Dates: start: 20180912
  3. BUROSUMAB [Suspect]
     Active Substance: BUROSUMAB
     Dosage: 40 MG
     Route: 058
     Dates: start: 20240903

REACTIONS (1)
  - Dental fistula [Recovered/Resolved]

NARRATIVE: CASE EVENT DATE: 20240912
